FAERS Safety Report 5895576-1 (Version None)
Quarter: 2008Q3

REPORT INFORMATION
  Report Type: 
  Country: None (occurrence: None)
  Receive Date: 20080919
  Receipt Date: 20080908
  Transmission Date: 20090109
  Serious: Yes (Hospitalization)
  Sender: FDA-Public Use
  Company Number: 2008AP002342

PATIENT
  Age: 49 Year
  Sex: Female

DRUGS (14)
  1. PAROXETINE HYDROCHLORIDE (PAROXETINE HYDROCHLORIDE) [Suspect]
     Indication: ANXIETY
     Dosage: 40 MG; QD
  2. PAROXETINE HYDROCHLORIDE (PAROXETINE HYDROCHLORIDE) [Suspect]
     Indication: DEPRESSION
     Dosage: 40 MG; QD
  3. CLONAZEPAM [Suspect]
     Indication: ANXIETY
     Dosage: 0.5 MG; QD
  4. CLONAZEPAM [Suspect]
     Indication: DEPRESSION
     Dosage: 0.5 MG; QD
  5. DIAZEPAM [Suspect]
     Indication: PREOPERATIVE CARE
     Dosage: 10 MG; 1X
  6. MIDAZOLAM HYDROCHLORIDE [Suspect]
     Indication: ANAESTHESIA
     Dosage: 0.3 ?G/KG; 1X
  7. PROPOFOL [Suspect]
     Indication: INDUCTION OF ANAESTHESIA
     Dosage: 9 MG/KG; 1X
  8. ROCURONIUM BROMIDE [Suspect]
     Indication: HYPOTONIA
     Dosage: 1 MG/KG; 1X
  9. SEVOFLURANE [Suspect]
     Indication: MAINTENANCE OF ANAESTHESIA
     Dosage: 1X
  10. SEROQUEL [Suspect]
     Indication: ANXIETY
     Dosage: 25 MG; BID
  11. SEROQUEL [Suspect]
     Indication: DEPRESSION
     Dosage: 25 MG; BID
  12. FENTANYL-100 [Suspect]
     Indication: ANAESTHESIA
     Dosage: 13 ?G/KG; 1X
  13. NOREPINEPHRINE BITARTRATE [Suspect]
     Indication: HYPOTENSION
     Dosage: 0.03 ?G/KG/MIN; 1X
  14. METHYLENE  BLUE (METHYLTHIONINIUM CHLORIDE) [Suspect]
     Indication: HYPOTENSION
     Dosage: 1 MG/KG; 1X

REACTIONS (28)
  - AGITATION [None]
  - ALANINE AMINOTRANSFERASE INCREASED [None]
  - BLOOD AMYLASE INCREASED [None]
  - BLOOD CREATINE PHOSPHOKINASE INCREASED [None]
  - BLOOD LACTATE DEHYDROGENASE INCREASED [None]
  - BLOOD POTASSIUM INCREASED [None]
  - BLOOD PRESSURE INCREASED [None]
  - BODY TEMPERATURE INCREASED [None]
  - CARDIAC FAILURE [None]
  - CENTRAL VENOUS PRESSURE DECREASED [None]
  - CHILLS [None]
  - CONFUSIONAL STATE [None]
  - DRUG INTERACTION [None]
  - HEART RATE INCREASED [None]
  - HYPERREFLEXIA [None]
  - HYPERTONIA [None]
  - HYPOTENSION [None]
  - MUSCLE RIGIDITY [None]
  - MYDRIASIS [None]
  - MYOCLONUS [None]
  - MYOGLOBIN URINE PRESENT [None]
  - POST PROCEDURAL COMPLICATION [None]
  - PULMONARY HYPERTENSION [None]
  - RHEUMATIC HEART DISEASE [None]
  - SEROTONIN SYNDROME [None]
  - TOXIC ENCEPHALOPATHY [None]
  - TREMOR [None]
  - TROPONIN INCREASED [None]
